FAERS Safety Report 25300103 (Version 4)
Quarter: 2025Q4

REPORT INFORMATION
  Report Type: Spontaneous
  Country: JP (occurrence: JP)
  Receive Date: 20250512
  Receipt Date: 20251112
  Transmission Date: 20260118
  Serious: Yes (Death, Hospitalization, Other)
  Sender: ALEXION PHARMACEUTICALS
  Company Number: JP-ASTRAZENECA-202505JPN005799JP

PATIENT
  Age: 51 Year
  Sex: Male
  Weight: 53 kg

DRUGS (3)
  1. ULTOMIRIS [Suspect]
     Active Substance: RAVULIZUMAB-CWVZ
     Indication: Neuromyelitis optica spectrum disorder
     Dosage: 2400 MILLIGRAM, QD
     Dates: start: 20240701
  2. ULTOMIRIS [Suspect]
     Active Substance: RAVULIZUMAB-CWVZ
     Dosage: 3000 MILLIGRAM, QD
     Dates: start: 20240715, end: 20250210
  3. CARBAMAZEPINE [Concomitant]
     Active Substance: CARBAMAZEPINE
     Dosage: 150 MILLIGRAM, BID
     Dates: start: 20240607, end: 20240716

REACTIONS (11)
  - Neoplasm progression [Fatal]
  - Metastases to central nervous system [Fatal]
  - Pneumonia [Unknown]
  - Sputum increased [Unknown]
  - Haematochezia [Unknown]
  - Anaemia [Unknown]
  - Tumour associated fever [Unknown]
  - Oxygen saturation decreased [Unknown]
  - Hypophagia [Unknown]
  - Bradycardia [Unknown]
  - Confusional state [Unknown]

NARRATIVE: CASE EVENT DATE: 20240501
